FAERS Safety Report 4720924-5 (Version None)
Quarter: 2005Q3

REPORT INFORMATION
  Report Type: 
  Country: None (occurrence: None)
  Receive Date: 20050719
  Receipt Date: 20050119
  Transmission Date: 20060218
  Serious: Yes (Other)
  Sender: FDA-Public Use
  Company Number: 2005018123

PATIENT
  Age: 79 Year
  Sex: Female
  Weight: 72.5755 kg

DRUGS (4)
  1. CELEBREX [Suspect]
     Indication: ARTHRITIS
     Dosage: UNK (200 MG, PRN), ORAL
     Route: 048
     Dates: start: 20030101
  2. LEVOTHYROXINE SODIUM [Concomitant]
  3. ALENDRONATE SODIUM [Concomitant]
  4. SIMVASTATIN [Concomitant]

REACTIONS (1)
  - TRANSIENT ISCHAEMIC ATTACK [None]
